FAERS Safety Report 9436215 (Version 2)
Quarter: 2013Q4

REPORT INFORMATION
  Report Type: Spontaneous
  Country: US (occurrence: US)
  Receive Date: 20130801
  Receipt Date: 20131005
  Transmission Date: 20140711
  Serious: No
  Sender: FDA-Public Use
  Company Number: US-009507513-1307USA015512

PATIENT
  Age: 52 Year
  Sex: Female
  Weight: 57.51 kg

DRUGS (5)
  1. VICTRELIS [Suspect]
     Indication: CHRONIC HEPATITIS C
     Dosage: 800 MG, TID
     Route: 048
     Dates: start: 201309
  2. PEGASYS [Suspect]
     Dosage: 180 MICROGRAM, QW
  3. PEGASYS [Suspect]
     Dosage: 135 MICROGRAM, QW
  4. RIBASPHERE [Suspect]
     Dosage: 600 MG IN MONING AND 400 MG IN THE EVENING
  5. RIBASPHERE [Suspect]
     Dosage: 200MG ONCE IN MORNING AND ONCE IN EVENING

REACTIONS (5)
  - Drug dose omission [Unknown]
  - Dizziness [Unknown]
  - Haemoglobin decreased [Not Recovered/Not Resolved]
  - Vomiting [Not Recovered/Not Resolved]
  - Fatigue [Not Recovered/Not Resolved]
